FAERS Safety Report 18383898 (Version 1)
Quarter: 2020Q4

REPORT INFORMATION
  Report Type: Spontaneous
  Country: GB (occurrence: GB)
  Receive Date: 20201014
  Receipt Date: 20201014
  Transmission Date: 20210114
  Serious: Yes (Life-Threatening, Hospitalization)
  Sender: FDA-Public Use
  Company Number: GB-PFIZER INC-2020393759

PATIENT
  Age: 28 Year
  Sex: Female
  Weight: 137 kg

DRUGS (3)
  1. NORETHISTERONE [Suspect]
     Active Substance: NORETHINDRONE
     Dosage: 15 MG, 1X/DAY
     Route: 048
     Dates: start: 20200721, end: 20200731
  2. IBUPROFEN. [Suspect]
     Active Substance: IBUPROFEN
     Dosage: 1200 MG, 1X/DAY
     Route: 048
     Dates: start: 20200825
  3. TRANEXAMIC ACID. [Suspect]
     Active Substance: TRANEXAMIC ACID
     Indication: VAGINAL HAEMORRHAGE
     Dosage: 3 G, 1X/DAY
     Route: 048
     Dates: start: 20200803, end: 20200807

REACTIONS (2)
  - Cerebral venous sinus thrombosis [Recovering/Resolving]
  - Off label use [Unknown]

NARRATIVE: CASE EVENT DATE: 20200721
